FAERS Safety Report 20802421 (Version 1)
Quarter: 2022Q2

REPORT INFORMATION
  Report Type: Spontaneous
  Country: US (occurrence: None)
  Receive Date: 20220509
  Receipt Date: 20220509
  Transmission Date: 20220721
  Serious: Yes (Life-Threatening, Hospitalization)
  Sender: FDA-Public Use
  Company Number: None

PATIENT
  Age: 65 Year
  Sex: Male

DRUGS (2)
  1. METFORMIN HYDROCHLORIDE [Suspect]
     Active Substance: METFORMIN HYDROCHLORIDE
     Indication: Acute kidney injury
     Dosage: FREQUENCY : TWICE A DAY;?
     Route: 048
     Dates: start: 20000427, end: 20220330
  2. METFORMIN HYDROCHLORIDE [Suspect]
     Active Substance: METFORMIN HYDROCHLORIDE
     Indication: Lactic acidosis

REACTIONS (9)
  - Toxicity to various agents [None]
  - Haemodialysis [None]
  - Sepsis [None]
  - Bacteroides bacteraemia [None]
  - Renal tubular necrosis [None]
  - Acute kidney injury [None]
  - Lactic acidosis [None]
  - Asthenia [None]
  - Fall [None]

NARRATIVE: CASE EVENT DATE: 20220330
